FAERS Safety Report 14081382 (Version 2)
Quarter: 2018Q1

REPORT INFORMATION
  Report Type: Spontaneous
  Country: JP (occurrence: JP)
  Receive Date: 20171012
  Receipt Date: 20180117
  Transmission Date: 20180508
  Serious: Yes (Other)
  Sender: FDA-Public Use
  Company Number: JP-SA-2017SA194511

PATIENT
  Age: 71 Year
  Sex: Male

DRUGS (14)
  1. 5-FU [Concomitant]
     Active Substance: FLUOROURACIL
     Route: 065
  2. ERBITUX [Concomitant]
     Active Substance: CETUXIMAB
     Route: 065
     Dates: start: 20160511
  3. DEXART [Concomitant]
     Active Substance: DEXAMETHASONE SODIUM PHOSPHATE
     Route: 065
     Dates: start: 20160511
  4. POLARAMINE [Concomitant]
     Active Substance: DEXCHLORPHENIRAMINE MALEATE
     Route: 065
     Dates: start: 20160511
  5. VALSARTAN. [Concomitant]
     Active Substance: VALSARTAN
     Route: 065
     Dates: end: 20160511
  6. BUFFERIN [Concomitant]
     Active Substance: ASPIRIN
     Route: 065
     Dates: start: 20160511
  7. ELPLAT [Suspect]
     Active Substance: OXALIPLATIN
     Indication: COLON CANCER
     Route: 041
     Dates: start: 20160511, end: 20160511
  8. GRANISETRON [Concomitant]
     Active Substance: GRANISETRON
     Route: 065
     Dates: start: 20160511
  9. GLICLAZIDE [Concomitant]
     Active Substance: GLICLAZIDE
     Route: 065
     Dates: end: 20160511
  10. RILMAZAFONE [Concomitant]
     Active Substance: RILMAZAFONE
     Route: 065
     Dates: end: 20160511
  11. BARACLUDE [Concomitant]
     Active Substance: ENTECAVIR
     Route: 065
     Dates: start: 20160511
  12. BAYASPIRIN [Concomitant]
     Active Substance: ASPIRIN
     Route: 065
     Dates: start: 20160511
  13. GLIMICRON [Concomitant]
     Active Substance: GLICLAZIDE
     Route: 065
     Dates: start: 20160511
  14. LEVOFOLINATE [Suspect]
     Active Substance: LEVOLEUCOVORIN CALCIUM
     Indication: COLON CANCER
     Route: 041
     Dates: start: 20160511

REACTIONS (1)
  - Pemphigus [Recovering/Resolving]

NARRATIVE: CASE EVENT DATE: 20160716
